FAERS Safety Report 6038224-2 (Version None)
Quarter: 2009Q1

REPORT INFORMATION
  Report Type: 
  Country: None (occurrence: None)
  Receive Date: 20090113
  Receipt Date: 20090113
  Transmission Date: 20090719
  Serious: Yes (Life-Threatening, Other)
  Sender: FDA-Public Use
  Company Number: None

PATIENT
  Age: 64 Year
  Sex: Female
  Weight: 80.7403 kg

DRUGS (1)
  1. FOSAMAX [Suspect]
     Indication: BONE DISORDER
     Dosage: WEEKLY

REACTIONS (5)
  - BARRETT'S OESOPHAGUS [None]
  - DENTAL CARIES [None]
  - DYSPEPSIA [None]
  - JAW DISORDER [None]
  - RESORPTION BONE INCREASED [None]
